FAERS Safety Report 10258481 (Version 2)
Quarter: 2014Q2

REPORT INFORMATION
  Report Type: Report from Study
  Country: SE (occurrence: SE)
  Receive Date: 20140625
  Receipt Date: 20140625
  Transmission Date: 20141212
  Serious: Yes (Hospitalization)
  Sender: FDA-Public Use
  Company Number: SE-ASTELLAS-2014EU005743

PATIENT
  Age: 38 Year
  Sex: Female

DRUGS (8)
  1. TACROLIMUS [Suspect]
     Indication: TRANSPLANT
     Dosage: UNK UNK, UNKNOWN FREQ.
     Route: 065
  2. TACROLIMUS [Suspect]
     Indication: IMMUNOSUPPRESSION
  3. MYCOPHENOLATE MOFETIL [Concomitant]
     Indication: TRANSPLANT
     Dosage: UNK UNK, TWICE DAILY
     Route: 065
  4. MYCOPHENOLATE MOFETIL [Concomitant]
     Indication: IMMUNOSUPPRESSION
  5. PREDNISOLONE [Concomitant]
     Indication: IMMUNOSUPPRESSION
     Dosage: UNK UNK, ONCE DAILY
     Route: 048
  6. THYMOGLOBULIN [Concomitant]
     Indication: IMMUNOSUPPRESSION
     Dosage: UNK UNK, UNKNOWN FREQ.
     Route: 065
  7. CORTISONE [Concomitant]
     Indication: IMMUNOSUPPRESSION
     Dosage: UNK UNK, UNKNOWN FREQ.
     Route: 065
  8. SOLU-MEDROL [Concomitant]
     Indication: IMMUNOSUPPRESSION
     Route: 065

REACTIONS (4)
  - Graft loss [Unknown]
  - Uterine abscess [Recovered/Resolved]
  - Enterococcal sepsis [Recovered/Resolved]
  - Off label use [Unknown]
